FAERS Safety Report 8177096-7 (Version None)
Quarter: 2012Q1

REPORT INFORMATION
  Report Type: 
  Country: None (occurrence: None)
  Receive Date: 20120301
  Receipt Date: 20111111
  Transmission Date: 20120608
  Serious: Yes (Other)
  Sender: FDA-Public Use
  Company Number: US-GLAXOSMITHKLINE-A0953817A

PATIENT
  Age: 77 Year
  Sex: Female
  Weight: 112.7 kg

DRUGS (3)
  1. FEMARA [Concomitant]
  2. TYKERB [Suspect]
     Indication: BREAST CANCER
     Dosage: 1250MG PER DAY
     Route: 065
  3. XELODA [Concomitant]
     Indication: BREAST CANCER
     Dosage: 1000MG TWICE PER DAY
     Dates: start: 20110128

REACTIONS (6)
  - GASTROINTESTINAL DISORDER [None]
  - EJECTION FRACTION DECREASED [None]
  - ADVERSE DRUG REACTION [None]
  - PULMONARY HYPERTENSION [None]
  - LEFT VENTRICULAR HYPERTROPHY [None]
  - TRICUSPID VALVE INCOMPETENCE [None]
